FAERS Safety Report 14227023 (Version 1)
Quarter: 2017Q4

REPORT INFORMATION
  Report Type: Spontaneous
  Country: FR (occurrence: FR)
  Receive Date: 20171127
  Receipt Date: 20171127
  Transmission Date: 20180321
  Serious: Yes (Hospitalization)
  Sender: FDA-Public Use
  Company Number: FR-INDIVIOR LIMITED-INDV-106451-2017

PATIENT
  Age: 44 Year
  Sex: Male

DRUGS (5)
  1. TIVICAY [Concomitant]
     Active Substance: DOLUTEGRAVIR SODIUM
     Indication: PRODUCT USED FOR UNKNOWN INDICATION
     Dosage: UNK
     Route: 065
  2. PREZISTA [Concomitant]
     Active Substance: DARUNAVIR ETHANOLATE
     Indication: PRODUCT USED FOR UNKNOWN INDICATION
     Dosage: UNK
     Route: 065
  3. NORVIR [Concomitant]
     Active Substance: RITONAVIR
     Indication: PRODUCT USED FOR UNKNOWN INDICATION
     Dosage: UNK
     Route: 065
  4. VIREAD [Concomitant]
     Active Substance: TENOFOVIR DISOPROXIL FUMARATE
     Indication: PRODUCT USED FOR UNKNOWN INDICATION
     Dosage: UNK
     Route: 065
  5. SUBUTEX [Suspect]
     Active Substance: BUPRENORPHINE HYDROCHLORIDE
     Indication: DRUG USE DISORDER
     Dosage: 4MG, SINGLE DOSE
     Route: 042
     Dates: start: 20160120, end: 20160120

REACTIONS (6)
  - Drug use disorder [Not Recovered/Not Resolved]
  - Vascular pseudoaneurysm [Unknown]
  - Deep vein thrombosis [Recovered/Resolved]
  - Intentional product use issue [Recovered/Resolved]
  - Lymphadenitis [Unknown]
  - Dermo-hypodermitis [Unknown]

NARRATIVE: CASE EVENT DATE: 20160120
